FAERS Safety Report 17274317 (Version 3)
Quarter: 2020Q2

REPORT INFORMATION
  Report Type: Report from Study
  Country: MY (occurrence: MY)
  Receive Date: 20200115
  Receipt Date: 20200609
  Transmission Date: 20200713
  Serious: Yes (Hospitalization)
  Sender: FDA-Public Use
  Company Number: MY-CELGENEUS-MYS-20190709322

PATIENT
  Age: 29 Year
  Sex: Female
  Weight: 37.3 kg

DRUGS (12)
  1. CALCIUM CARBONATE. [Concomitant]
     Active Substance: CALCIUM CARBONATE
     Indication: SUPPLEMENTATION THERAPY
     Dosage: 1000 MILLIGRAM
     Route: 048
     Dates: start: 20190722
  2. CHOLECALCIFEROL [Concomitant]
     Active Substance: CHOLECALCIFEROL
     Indication: SUPPLEMENTATION THERAPY
     Dosage: 5000 IU (INTERNATIONAL UNIT)
     Route: 048
     Dates: start: 20190722
  3. PHENOXYMETHYL PENICILLIN V [Concomitant]
     Dosage: 500 MILLIGRAM
     Route: 065
  4. LUSPATERCEPT. [Suspect]
     Active Substance: LUSPATERCEPT
     Indication: THALASSAEMIA BETA
     Route: 058
     Dates: start: 20190115, end: 20190115
  5. ASPIRIN. [Concomitant]
     Active Substance: ASPIRIN
     Indication: POSTOPERATIVE CARE
     Dosage: 300 MILLIGRAM
     Route: 048
     Dates: start: 20190723
  6. LUSPATERCEPT. [Suspect]
     Active Substance: LUSPATERCEPT
     Dosage: 1.25 MILLIGRAM/KILOGRAM
     Route: 058
     Dates: start: 20191001, end: 20191001
  7. DIPHENHYDRAMINE. [Concomitant]
     Active Substance: DIPHENHYDRAMINE
     Indication: COUGH
     Dosage: 45 MILLILITER
     Route: 048
     Dates: start: 20190722
  8. LUSPATERCEPT. [Suspect]
     Active Substance: LUSPATERCEPT
     Route: 058
     Dates: start: 20190709, end: 20190709
  9. LUSPATERCEPT. [Suspect]
     Active Substance: LUSPATERCEPT
     Dosage: 1.25 MILLIGRAM/KILOGRAM
     Route: 058
     Dates: start: 20190805, end: 20190805
  10. ASPIRIN. [Concomitant]
     Active Substance: ASPIRIN
     Dosage: 100 MILLIGRAM
     Route: 065
  11. PHENOXYMETHYL PENICILLIN V [Concomitant]
     Indication: PROPHYLAXIS
     Dosage: 1000 MILLIGRAM
     Route: 048
     Dates: start: 20190722
  12. FOLIC ACID. [Concomitant]
     Active Substance: FOLIC ACID
     Indication: SUPPLEMENTATION THERAPY
     Dosage: 5 MILLIGRAM
     Route: 048
     Dates: start: 20190722

REACTIONS (1)
  - Nodular fasciitis [Recovered/Resolved]

NARRATIVE: CASE EVENT DATE: 20190619
